FAERS Safety Report 18386404 (Version 2)
Quarter: 2020Q4

REPORT INFORMATION
  Report Type: Spontaneous
  Country: US (occurrence: US)
  Receive Date: 20201015
  Receipt Date: 20201125
  Transmission Date: 20210114
  Serious: Yes (Hospitalization)
  Sender: FDA-Public Use
  Company Number: US-JNJFOC-20201009977

PATIENT
  Sex: Male

DRUGS (1)
  1. INVOKANA [Suspect]
     Active Substance: CANAGLIFLOZIN
     Indication: CHRONIC KIDNEY DISEASE
     Route: 048

REACTIONS (3)
  - Hypertension [Unknown]
  - Glomerular filtration rate decreased [Unknown]
  - Product label issue [Unknown]
